FAERS Safety Report 12632753 (Version 2)
Quarter: 2016Q3

REPORT INFORMATION
  Report Type: Spontaneous
  Country: US (occurrence: US)
  Receive Date: 20160808
  Receipt Date: 20160808
  Transmission Date: 20161109
  Serious: Yes (Hospitalization)
  Sender: FDA-Public Use
  Company Number: US-BEH-2015056738

PATIENT
  Sex: Female
  Weight: 90 kg

DRUGS (26)
  1. FLUOXETINE HCL [Concomitant]
     Active Substance: FLUOXETINE HYDROCHLORIDE
  2. ALBUTEROL SULFATE HFA [Concomitant]
  3. EPIPEN [Concomitant]
     Active Substance: EPINEPHRINE
  4. ARNICA TINCTURE [Concomitant]
  5. VITAMIN B12 [Concomitant]
     Active Substance: CYANOCOBALAMIN
  6. AMITRIPTYLINE HCL [Concomitant]
     Active Substance: AMITRIPTYLINE
  7. FISH OIL [Concomitant]
     Active Substance: FISH OIL
  8. METFORMIN HCL [Concomitant]
     Active Substance: METFORMIN HYDROCHLORIDE
  9. GLUCOSAMINE SULFATE [Concomitant]
     Active Substance: GLUCOSAMINE SULFATE
  10. IRON [Concomitant]
     Active Substance: IRON
  11. HIZENTRA [Suspect]
     Active Substance: HUMAN IMMUNOGLOBULIN G
     Indication: IMMUNODEFICIENCY COMMON VARIABLE
     Route: 058
     Dates: start: 20110512
  12. ZOLPIDEM TARTRATE. [Suspect]
     Active Substance: ZOLPIDEM TARTRATE
  13. DIPHENHYDRAMINE. [Concomitant]
     Active Substance: DIPHENHYDRAMINE
  14. LIDOCAINE/PRILOCAINE [Concomitant]
     Active Substance: LIDOCAINE\PRILOCAINE
  15. ZITHROMAX [Concomitant]
     Active Substance: AZITHROMYCIN DIHYDRATE
  16. CALCIUM+VITAMIN D [Concomitant]
     Active Substance: CALCIUM\VITAMIN D
  17. PRAVASTATIN SODIUM. [Concomitant]
     Active Substance: PRAVASTATIN SODIUM
  18. FLOVENT [Concomitant]
     Active Substance: FLUTICASONE PROPIONATE
  19. VITAMIN D [Concomitant]
     Active Substance: CHOLECALCIFEROL
  20. PREDNISONE. [Concomitant]
     Active Substance: PREDNISONE
  21. COMPLETE MULTIVITAMIN [Concomitant]
     Active Substance: VITAMINS
  22. TRAMADOL HCL [Concomitant]
     Active Substance: TRAMADOL HYDROCHLORIDE
  23. HIZENTRA [Suspect]
     Active Substance: HUMAN IMMUNOGLOBULIN G
     Route: 058
     Dates: start: 20110512
  24. CLONAZEPAM. [Suspect]
     Active Substance: CLONAZEPAM
  25. OMEPRAZOLE DR [Concomitant]
     Active Substance: OMEPRAZOLE
  26. DICLOFENAC SODIUM DR [Concomitant]
     Active Substance: DICLOFENAC SODIUM

REACTIONS (1)
  - Sleep apnoea syndrome [Unknown]
